FAERS Safety Report 18946586 (Version 3)
Quarter: 2021Q2

REPORT INFORMATION
  Report Type: Report from Study
  Country: US (occurrence: US)
  Receive Date: 20210226
  Receipt Date: 20210422
  Transmission Date: 20210717
  Serious: No
  Sender: FDA-Public Use
  Company Number: US-TAKEDA-2021TUS012501

PATIENT
  Sex: Female
  Weight: 58 kg

DRUGS (13)
  1. DIPHENHYDRAMINE. [Concomitant]
     Active Substance: DIPHENHYDRAMINE
  2. LMX4 [Concomitant]
     Active Substance: LIDOCAINE
  3. PROTONIX [OMEPRAZOLE] [Concomitant]
     Active Substance: OMEPRAZOLE
  4. VITAMIN D2 [Concomitant]
     Active Substance: ERGOCALCIFEROL
  5. ACETAMINOPHEN. [Concomitant]
     Active Substance: ACETAMINOPHEN
  6. EPINEPHRINE. [Concomitant]
     Active Substance: EPINEPHRINE
  7. ATENOLOL. [Concomitant]
     Active Substance: ATENOLOL
  8. NIACIN. [Concomitant]
     Active Substance: NIACIN
  9. ASPIRIN (E.C.) [Concomitant]
     Active Substance: ASPIRIN
  10. CUVITRU [Suspect]
     Active Substance: HUMAN IMMUNOGLOBULIN G
     Indication: IMMUNODEFICIENCY COMMON VARIABLE
     Dosage: 11 GRAM, Q2WEEKS
     Route: 058
     Dates: start: 20210110
  11. VITAMIN B12 [Concomitant]
     Active Substance: CYANOCOBALAMIN
  12. MAGOX [Concomitant]
  13. LISINOPRIL. [Concomitant]
     Active Substance: LISINOPRIL

REACTIONS (3)
  - Sneezing [Unknown]
  - Tinea pedis [Unknown]
  - Fungal skin infection [Unknown]
